FAERS Safety Report 24126303 (Version 1)
Quarter: 2024Q3

REPORT INFORMATION
  Report Type: Spontaneous
  Country: FR (occurrence: FR)
  Receive Date: 20240723
  Receipt Date: 20240723
  Transmission Date: 20241016
  Serious: Yes (Hospitalization)
  Sender: MYLAN
  Company Number: None

PATIENT
  Age: 82 Year
  Sex: Male
  Weight: 75 kg

DRUGS (7)
  1. IRBESARTAN [Suspect]
     Active Substance: IRBESARTAN
     Indication: Hypertension
     Dosage: 150 MILLIGRAM, QD, LONG COURSE
     Route: 048
  2. PAROXETINE [Suspect]
     Active Substance: PAROXETINE
     Indication: Product used for unknown indication
     Dosage: 20 MILLIGRAM, QD, LONG COURSE
     Route: 048
  3. MOXONIDINE [Suspect]
     Active Substance: MOXONIDINE
     Indication: Hypertension
     Dosage: 0.4 MILLIGRAM, QD, LONG COURSE
     Route: 048
  4. LERCANIDIPINE [Suspect]
     Active Substance: LERCANIDIPINE
     Indication: Hypertension
     Dosage: 5 MILLIGRAM, QD, LONG COURSE
     Route: 048
  5. BENSERAZIDE HYDROCHLORIDE\LEVODOPA [Suspect]
     Active Substance: BENSERAZIDE HYDROCHLORIDE\LEVODOPA
     Indication: Progressive supranuclear palsy
     Dosage: 3 DOSAGE FORM, QD, LONG COURSE (QUADRISECTIBLE TABLET)
     Route: 048
  6. CLOZAPINE [Suspect]
     Active Substance: CLOZAPINE
     Indication: Product used for unknown indication
     Dosage: 12.5 MILLIGRAM, QD, LONG COURSE
     Route: 048
  7. OXAZEPAM [Suspect]
     Active Substance: OXAZEPAM
     Indication: Agitation
     Dosage: 20 MILLIGRAM, QD
     Route: 048
     Dates: end: 20230825

REACTIONS (1)
  - Fall [Not Recovered/Not Resolved]

NARRATIVE: CASE EVENT DATE: 20230407
